FAERS Safety Report 11273785 (Version 1)
Quarter: 2015Q3

REPORT INFORMATION
  Report Type: Spontaneous
  Country: US (occurrence: US)
  Receive Date: 20150715
  Receipt Date: 20150715
  Transmission Date: 20151125
  Serious: No
  Sender: FDA-Public Use
  Company Number: US-ENDO PHARMACEUTICALS INC.-201410170

PATIENT

DRUGS (1)
  1. EDEX [Suspect]
     Active Substance: ALPROSTADIL

REACTIONS (1)
  - Injury associated with device [Unknown]
